FAERS Safety Report 6296018-7 (Version None)
Quarter: 2009Q3

REPORT INFORMATION
  Report Type: 
  Country: None (occurrence: None)
  Receive Date: 20090804
  Receipt Date: 20090724
  Transmission Date: 20100115
  Serious: Yes (Death)
  Sender: FDA-Public Use
  Company Number: CO-PFIZER INC-2009246315

PATIENT
  Age: 61 Year

DRUGS (5)
  1. SUTENT [Suspect]
     Indication: RENAL CANCER
     Dosage: 50 MG, 1X/DAY, EVERY DAY
     Route: 048
     Dates: start: 20090512, end: 20090716
  2. FLUOXETINE [Concomitant]
  3. TRAZODONE [Concomitant]
  4. METOPROLOL [Concomitant]
  5. LOSARTAN POTASSIUM [Concomitant]

REACTIONS (2)
  - ABDOMINAL PAIN [None]
  - MUCOSAL INFLAMMATION [None]
